FAERS Safety Report 8583507-5 (Version None)
Quarter: 2012Q3

REPORT INFORMATION
  Report Type: 
  Country: None (occurrence: None)
  Receive Date: 20120809
  Receipt Date: 20120731
  Transmission Date: 20120928
  Serious: Yes (Other)
  Sender: FDA-Public Use
  Company Number: BE-UCBSA-062972

PATIENT
  Sex: Male
  Weight: 110 kg

DRUGS (4)
  1. AC VALPROIQUE [Concomitant]
     Indication: EPILEPSY
     Route: 048
  2. GABAPENTIN [Concomitant]
     Indication: EPILEPSY
     Route: 048
  3. VIMPAT [Suspect]
     Indication: EPILEPSY
     Route: 048
  4. CARBAMAZEPINE [Concomitant]
     Indication: EPILEPSY
     Route: 048

REACTIONS (1)
  - CONVULSION [None]
